FAERS Safety Report 6435628-0 (Version None)
Quarter: 2009Q4

REPORT INFORMATION
  Report Type: 
  Country: None (occurrence: None)
  Receive Date: 20091111
  Receipt Date: 20091109
  Transmission Date: 20100525
  Serious: Yes (Hospitalization, Other)
  Sender: FDA-Public Use
  Company Number: US-TEVA-214715USA

PATIENT
  Age: 65 Year
  Sex: Female

DRUGS (5)
  1. FLUOROURACIL [Suspect]
     Indication: RECTAL CANCER
  2. OXALIPLATIN [Concomitant]
  3. FOLINIC ACID [Concomitant]
  4. BEVACIZUMAB [Concomitant]
  5. OXYCODONE HCL [Concomitant]

REACTIONS (1)
  - ACUTE PSYCHOSIS [None]
